FAERS Safety Report 19438297 (Version 1)
Quarter: 2021Q2

REPORT INFORMATION
  Report Type: Other
  Country: JP (occurrence: JP)
  Receive Date: 20210618
  Receipt Date: 20210618
  Transmission Date: 20210717
  Serious: Yes (Hospitalization)
  Sender: FDA-Public Use
  Company Number: JP-UROVANT SCIENCES GMBH-202106-URV-000260

PATIENT
  Age: 92 Year
  Sex: Female

DRUGS (1)
  1. BEOVA TABLETS [Suspect]
     Active Substance: VIBEGRON
     Indication: PRODUCT USED FOR UNKNOWN INDICATION
     Dosage: UNK
     Route: 048

REACTIONS (1)
  - Compression fracture [Unknown]
